FAERS Safety Report 7273072-7 (Version None)
Quarter: 2011Q1

REPORT INFORMATION
  Report Type: 
  Country: None (occurrence: None)
  Receive Date: 20110203
  Receipt Date: 20110125
  Transmission Date: 20110831
  Serious: Yes (Hospitalization)
  Sender: FDA-Public Use
  Company Number: US-ASTRAZENECA-2010SE16163

PATIENT
  Age: 48 Year
  Sex: Female

DRUGS (1)
  1. TOPROL-XL [Suspect]
     Route: 048

REACTIONS (7)
  - NASOPHARYNGITIS [None]
  - BRONCHITIS [None]
  - HEADACHE [None]
  - DRUG DOSE OMISSION [None]
  - HYPERTENSION [None]
  - GASTROENTERITIS SALMONELLA [None]
  - HYPERTHYROIDISM [None]
